FAERS Safety Report 23531287 (Version 1)
Quarter: 2024Q1

REPORT INFORMATION
  Report Type: Spontaneous
  Country: US (occurrence: None)
  Receive Date: 20240215
  Receipt Date: 20240215
  Transmission Date: 20240410
  Serious: Yes (Disabling)
  Sender: FDA-Public Use
  Company Number: None

PATIENT
  Age: 60 Year
  Sex: Female
  Weight: 87.75 kg

DRUGS (6)
  1. MOUNJARO [Suspect]
     Active Substance: TIRZEPATIDE
     Indication: Type 2 diabetes mellitus
     Dosage: OTHER QUANTITY : 1 INJECTION(S);?OTHER FREQUENCY : ONCE WEEKLY;?
     Route: 058
     Dates: start: 20221031, end: 20230407
  2. Toujeo 64 units qHS [Concomitant]
  3. insulin aspart sliding scale [Concomitant]
  4. metformin 1000mg qHS [Concomitant]
  5. losartan 50mg daily qHS [Concomitant]
  6. atorvastatin 10mg daily qHS [Concomitant]

REACTIONS (12)
  - Urticaria [None]
  - Urticaria [None]
  - Heart rate increased [None]
  - Hyperhidrosis [None]
  - Diarrhoea [None]
  - Abdominal pain [None]
  - Dizziness [None]
  - Constipation [None]
  - Abdominal discomfort [None]
  - Pruritus [None]
  - Cholelithiasis [None]
  - Therapy cessation [None]

NARRATIVE: CASE EVENT DATE: 20230201
